FAERS Safety Report 4496169-3 (Version None)
Quarter: 2004Q4

REPORT INFORMATION
  Report Type: 
  Country: None (occurrence: None)
  Receive Date: 20041109
  Receipt Date: 20041105
  Transmission Date: 20050328
  Serious: Yes (Hospitalization)
  Sender: FDA-Public Use
  Company Number: US-RB-1085-2004

PATIENT
  Age: 57 Year
  Sex: Male

DRUGS (3)
  1. SUBOXONE [Suspect]
     Dosage: DR. GROMOV WOULD ONLY GIVE THE INFORMATION THAT THIS PATIENT HAD BEEN ON 6 MGS. FOR 4 DAYS OF INDUCT
     Route: 060
  2. MEDICINALPRODUCT NOT SPECIFIED BY SENDER [Concomitant]
  3. MEDICINALPRODUCT NOT SPECIFIED BY SENDER [Concomitant]

REACTIONS (2)
  - CHEST PAIN [None]
  - INAPPROPRIATE ANTIDIURETIC HORMONE SECRETION [None]
